FAERS Safety Report 25322380 (Version 1)
Quarter: 2025Q2

REPORT INFORMATION
  Report Type: Spontaneous
  Country: US (occurrence: US)
  Receive Date: 20250516
  Receipt Date: 20250516
  Transmission Date: 20250717
  Serious: Yes (Hospitalization, Other)
  Sender: ZYDUS PHARM
  Company Number: US-CADILA HEALTHCARE LIMITED-US-ZYDUS-123335

PATIENT

DRUGS (9)
  1. DULOXETINE [Interacting]
     Active Substance: DULOXETINE
     Indication: Product used for unknown indication
     Route: 065
  2. OLANZAPINE [Interacting]
     Active Substance: OLANZAPINE
     Indication: Procedural pain
     Route: 065
  3. OLANZAPINE [Interacting]
     Active Substance: OLANZAPINE
     Route: 065
  4. GABAPENTIN [Interacting]
     Active Substance: GABAPENTIN
     Indication: Product used for unknown indication
     Route: 065
  5. HYDROMORPHONE [Interacting]
     Active Substance: HYDROMORPHONE
     Indication: Procedural pain
     Route: 065
  6. HYDROMORPHONE [Interacting]
     Active Substance: HYDROMORPHONE
     Route: 065
  7. HYDROMORPHONE [Interacting]
     Active Substance: HYDROMORPHONE
     Route: 065
  8. METHADONE [Interacting]
     Active Substance: METHADONE HYDROCHLORIDE
     Indication: Product used for unknown indication
     Route: 065
  9. ONDANSETRON [Interacting]
     Active Substance: ONDANSETRON
     Indication: Product used for unknown indication
     Route: 065

REACTIONS (4)
  - Drug interaction [Unknown]
  - Serotonin syndrome [Unknown]
  - Anhedonia [Unknown]
  - Withdrawal syndrome [Unknown]
